FAERS Safety Report 21359767 (Version 2)
Quarter: 2023Q2

REPORT INFORMATION
  Report Type: Spontaneous
  Country: GB (occurrence: GB)
  Receive Date: 20220921
  Receipt Date: 20230412
  Transmission Date: 20230721
  Serious: Yes (Other)
  Sender: FDA-Public Use
  Company Number: None

PATIENT
  Age: 56 Year
  Sex: Female
  Weight: 61 kg

DRUGS (6)
  1. BETAMETHASONE DIPROPIONATE [Suspect]
     Active Substance: BETAMETHASONE DIPROPIONATE
     Indication: Adverse drug reaction
     Dosage: UNK (ADDITIONAL INFO: ROUTE) (FORMULATION REPORTED AS SUSPENSION)
     Dates: end: 20220628
  2. BETAMETHASONE DIPROPIONATE [Suspect]
     Active Substance: BETAMETHASONE DIPROPIONATE
     Indication: Dermatitis
  3. BETAMETHASONE VALERATE\FUSIDIC ACID [Suspect]
     Active Substance: BETAMETHASONE VALERATE\FUSIDIC ACID
     Indication: Hand dermatitis
     Dosage: UNK (ADDITIONAL INFO: ROUTE) (FORMULATION REPORTED AS NOT APPLICABLE)
     Dates: end: 20220628
  4. HYDROCORTISONE [Suspect]
     Active Substance: HYDROCORTISONE
     Indication: Adverse drug reaction
     Dosage: UNK (ADDITIONAL INFO: ROUTE)
     Dates: end: 20220628
  5. HYDROCORTISONE [Suspect]
     Active Substance: HYDROCORTISONE
     Indication: Dermatitis
  6. CETIRIZINE [Concomitant]
     Active Substance: CETIRIZINE HYDROCHLORIDE
     Indication: Pruritus
     Dosage: UNK (ADDITIONAL INFO: ROUTE)

REACTIONS (18)
  - Medication error [Unknown]
  - Topical steroid withdrawal reaction [Not Recovered/Not Resolved]
  - Product communication issue [Unknown]
  - Alopecia [Unknown]
  - Increased appetite [Unknown]
  - Thirst [Unknown]
  - Pruritus [Unknown]
  - Skin exfoliation [Unknown]
  - Dermatitis [Unknown]
  - Skin weeping [Unknown]
  - Skin hypertrophy [Unknown]
  - Peripheral swelling [Unknown]
  - Abdominal distension [Unknown]
  - Urine output decreased [Unknown]
  - Product intolerance [Unknown]
  - Urticaria aquagenic [Unknown]
  - Insomnia [Unknown]
  - Product advertising issue [Unknown]

NARRATIVE: CASE EVENT DATE: 20220702
